FAERS Safety Report 11855801 (Version 6)
Quarter: 2019Q3

REPORT INFORMATION
  Report Type: Spontaneous
  Country: US (occurrence: US)
  Receive Date: 20151221
  Receipt Date: 20190805
  Transmission Date: 20191004
  Serious: Yes (Hospitalization, Other)
  Sender: FDA-Public Use
  Company Number: US-GLAXOSMITHKLINE-US2015178957

PATIENT
  Age: 62 Year
  Sex: Female

DRUGS (3)
  1. ROPINIROLE HYDROCHLORIDE. [Suspect]
     Active Substance: ROPINIROLE HYDROCHLORIDE
     Indication: RESTLESS LEGS SYNDROME
     Dosage: UNK
     Route: 065
  2. REQUIP [Suspect]
     Active Substance: ROPINIROLE HYDROCHLORIDE
     Indication: RESTLESS LEGS SYNDROME
     Dosage: UNK (0.5 MG MORMING AND 0.2 MG NIGHT)
     Route: 048
     Dates: start: 2005
  3. REQUIP [Suspect]
     Active Substance: ROPINIROLE HYDROCHLORIDE
     Dosage: UNK

REACTIONS (8)
  - Uterine cancer [Unknown]
  - Drug ineffective [Unknown]
  - Therapeutic response unexpected [Unknown]
  - Product substitution issue [Unknown]
  - Hysterectomy [Recovering/Resolving]
  - Uterine haemorrhage [Recovered/Resolved]
  - Emotional distress [Unknown]
  - Product dispensing error [Unknown]

NARRATIVE: CASE EVENT DATE: 201511
